FAERS Safety Report 10195921 (Version 1)
Quarter: 2014Q2

REPORT INFORMATION
  Report Type: Spontaneous
  Country: BE (occurrence: BE)
  Receive Date: 20140527
  Receipt Date: 20140527
  Transmission Date: 20141212
  Serious: Yes (Hospitalization, Other)
  Sender: FDA-Public Use
  Company Number: BE-JNJFOC-20140412972

PATIENT
  Age: 84 Year
  Sex: Male

DRUGS (1)
  1. HALDOL DECANOAS [Suspect]
     Indication: PRODUCT USED FOR UNKNOWN INDICATION
     Route: 030
     Dates: start: 20140416

REACTIONS (4)
  - Somnolence [Not Recovered/Not Resolved]
  - Eating disorder [Unknown]
  - Accidental overdose [Unknown]
  - Medication error [Unknown]
